FAERS Safety Report 8940060 (Version 2)
Quarter: 2017Q3

REPORT INFORMATION
  Report Type: Spontaneous
  Country: US (occurrence: US)
  Receive Date: 20121203
  Receipt Date: 20170915
  Transmission Date: 20171128
  Serious: No
  Sender: FDA-Public Use
  Company Number: US-009507513-1211USA009179

PATIENT
  Sex: Female

DRUGS (1)
  1. COSOPT [Suspect]
     Active Substance: DORZOLAMIDE HYDROCHLORIDE\TIMOLOL MALEATE
     Dosage: ONE DROP IN EACH EYE, TWICE A DAY
     Route: 047
     Dates: start: 200611

REACTIONS (4)
  - Drug dose omission [Unknown]
  - Eye irritation [Not Recovered/Not Resolved]
  - Drug dose omission [Unknown]
  - Ocular discomfort [Unknown]

NARRATIVE: CASE EVENT DATE: 20121116
